FAERS Safety Report 6905147-3 (Version None)
Quarter: 2010Q3

REPORT INFORMATION
  Report Type: 
  Country: None (occurrence: None)
  Receive Date: 20100804
  Receipt Date: 20091201
  Transmission Date: 20110219
  Serious: Yes (Other)
  Sender: FDA-Public Use
  Company Number: US-PFIZER INC-2009223407

PATIENT
  Sex: Male
  Weight: 69.388 kg

DRUGS (5)
  1. LYRICA [Suspect]
     Indication: BACK PAIN
     Dosage: 75 MG, 2X/DAY
     Dates: start: 20080801, end: 20081001
  2. LYRICA [Suspect]
     Indication: INJURY
  3. AMOXICILLIN [Concomitant]
     Dosage: UNK
  4. ROBAXIN [Concomitant]
     Dosage: UNK
  5. PANADEINE CO [Concomitant]
     Dosage: UNK

REACTIONS (3)
  - HYPOAESTHESIA [None]
  - NEUROPATHY PERIPHERAL [None]
  - OEDEMA PERIPHERAL [None]
